FAERS Safety Report 15048955 (Version 1)
Quarter: 2018Q2

REPORT INFORMATION
  Report Type: Report from Study
  Country: DE (occurrence: DE)
  Receive Date: 20180622
  Receipt Date: 20180622
  Transmission Date: 20180711
  Serious: Yes (Hospitalization, Other)
  Sender: FDA-Public Use
  Company Number: DE-ROCHE-2140435

PATIENT
  Age: 79 Year
  Sex: Female
  Weight: 65 kg

DRUGS (12)
  1. COBIMETINIB. [Suspect]
     Active Substance: COBIMETINIB
     Route: 048
     Dates: start: 20180403
  2. VEMURAFENIB. [Suspect]
     Active Substance: VEMURAFENIB
     Indication: MALIGNANT MELANOMA
     Route: 048
     Dates: start: 20180312, end: 20180320
  3. ENOXAPARIN [Suspect]
     Active Substance: ENOXAPARIN
     Indication: ATRIAL FIBRILLATION
     Route: 058
     Dates: start: 20180403, end: 20180417
  4. ENOXAPARIN [Suspect]
     Active Substance: ENOXAPARIN
     Route: 058
  5. ENOXAPARIN [Suspect]
     Active Substance: ENOXAPARIN
     Route: 058
  6. ENOXAPARIN [Suspect]
     Active Substance: ENOXAPARIN
     Route: 058
     Dates: start: 20180403, end: 20180417
  7. ASPIRIN. [Concomitant]
     Active Substance: ASPIRIN
     Route: 048
  8. CANDESARTAN. [Concomitant]
     Active Substance: CANDESARTAN
     Indication: HYPERTENSION
     Route: 048
  9. TORASEMID [Concomitant]
     Active Substance: TORSEMIDE
     Indication: HYPERTENSION
     Route: 048
     Dates: start: 201803
  10. CEFTRIAXONE. [Suspect]
     Active Substance: CEFTRIAXONE
     Indication: INFECTION
     Route: 065
     Dates: start: 20180321, end: 20180325
  11. COBIMETINIB. [Suspect]
     Active Substance: COBIMETINIB
     Indication: MALIGNANT MELANOMA
     Route: 048
     Dates: start: 20180312, end: 20180320
  12. METRONIDAZOL [Concomitant]
     Active Substance: METRONIDAZOLE
     Route: 065
     Dates: start: 20180412, end: 20180418

REACTIONS (14)
  - Melaena [Not Recovered/Not Resolved]
  - Dyspnoea [Recovered/Resolved]
  - Fibrin D dimer increased [Unknown]
  - Anaemia [Recovering/Resolving]
  - Helicobacter infection [Unknown]
  - Deep vein thrombosis [Unknown]
  - Syncope [Recovering/Resolving]
  - Gastric ulcer [Not Recovered/Not Resolved]
  - Erythema multiforme [Recovered/Resolved]
  - Atrial fibrillation [Recovered/Resolved]
  - Upper gastrointestinal haemorrhage [Unknown]
  - Pulmonary embolism [Unknown]
  - Infection [Recovering/Resolving]
  - Stevens-Johnson syndrome [Recovered/Resolved]

NARRATIVE: CASE EVENT DATE: 20180320
